FAERS Safety Report 6012322-1 (Version None)
Quarter: 2008Q4

REPORT INFORMATION
  Report Type: 
  Country: None (occurrence: None)
  Receive Date: 20081218
  Receipt Date: 20081104
  Transmission Date: 20090506
  Serious: No
  Sender: FDA-Public Use
  Company Number: US-ASTRAZENECA-2008UW10283

PATIENT
  Age: 13535 Day
  Sex: Female

DRUGS (10)
  1. SYMBICORT [Suspect]
     Indication: ASTHMA
     Dosage: 160/4.5 UG 2 PUFFS BID
     Route: 055
     Dates: start: 20080409, end: 20080701
  2. SYMBICORT [Suspect]
     Dosage: 160/4.5 UG 2 PUFFS ONCE A DAY
     Route: 055
     Dates: start: 20080801
  3. INTAL [Concomitant]
  4. SINGULAIR [Concomitant]
  5. ALLEGRA [Concomitant]
  6. CRESTOR [Concomitant]
     Route: 048
  7. CARDIZEM LA [Concomitant]
     Dosage: 360 MG
  8. COREG [Concomitant]
     Dosage: 80 MG
     Dates: start: 20080701
  9. VERAMYST [Concomitant]
  10. ASMANEX TWISTHALER [Concomitant]

REACTIONS (6)
  - ASTHMA [None]
  - COUGH [None]
  - DYSPNOEA [None]
  - NASOPHARYNGITIS [None]
  - OEDEMA PERIPHERAL [None]
  - PULMONARY CONGESTION [None]
